FAERS Safety Report 14354837 (Version 2)
Quarter: 2018Q1

REPORT INFORMATION
  Report Type: Spontaneous
  Country: US (occurrence: US)
  Receive Date: 20180105
  Receipt Date: 20180126
  Transmission Date: 20180509
  Serious: Yes (Other)
  Sender: FDA-Public Use
  Company Number: US-BAYER-2018-000118

PATIENT
  Age: 55 Year
  Sex: Female

DRUGS (1)
  1. BETASERON [Suspect]
     Active Substance: INTERFERON BETA-1B
     Dosage: UNK

REACTIONS (4)
  - Seizure like phenomena [Recovered/Resolved]
  - Feeling cold [Recovered/Resolved]
  - Seizure like phenomena [None]
  - Nervousness [Recovered/Resolved]

NARRATIVE: CASE EVENT DATE: 2017
